FAERS Safety Report 20305850 (Version 2)
Quarter: 2022Q2

REPORT INFORMATION
  Report Type: Spontaneous
  Country: US (occurrence: US)
  Receive Date: 20220106
  Receipt Date: 20220420
  Transmission Date: 20220721
  Serious: No
  Sender: FDA-Public Use
  Company Number: US-PFIZER INC-202101355290

PATIENT
  Age: 73 Year
  Sex: Female
  Weight: 77.11 kg

DRUGS (1)
  1. IBRANCE [Suspect]
     Active Substance: PALBOCICLIB
     Indication: Metastases to breast
     Dosage: 125 MG, CYCLIC (125MG, TABLET, BY MOUTH, ONCE DAILY FOR 21 DAYS ON, OFF 7)
     Route: 048
     Dates: start: 202106

REACTIONS (1)
  - Diarrhoea [Unknown]
